FAERS Safety Report 5003976-7 (Version None)
Quarter: 2006Q2

REPORT INFORMATION
  Report Type: 
  Country: None (occurrence: None)
  Receive Date: 20060515
  Receipt Date: 20060515
  Transmission Date: 20061013
  Serious: Yes (Life-Threatening, Hospitalization, Other)
  Sender: FDA-Public Use
  Company Number: None

PATIENT
  Sex: Male
  Weight: 117.9352 kg

DRUGS (1)
  1. QUETIAPINE FUMARATE [Suspect]
     Indication: MENTAL DISORDER
     Dosage: ONE TABLET   AT BEDTIME  PO
     Route: 048
     Dates: start: 20031101, end: 20040801

REACTIONS (3)
  - GASTROINTESTINAL DISORDER [None]
  - MULTI-ORGAN DISORDER [None]
  - URINARY TRACT DISORDER [None]
